FAERS Safety Report 8882660 (Version 1)
Quarter: 2012Q4

REPORT INFORMATION
  Report Type: 
  Country: US (occurrence: US)
  Receive Date: 20121105
  Receipt Date: 20121105
  Transmission Date: 20130627
  Serious: Yes (Death, Hospitalization)
  Sender: FDA-Public Use
  Company Number: US-SHIRE-ALL1-2012-05332

PATIENT
  Age: 70 None
  Sex: Male

DRUGS (1)
  1. FOSRENOL [Suspect]
     Indication: HYPERPHOSPHATAEMIA
     Dosage: 1000 mg, 4x/day:qid (two 500 mg tablets)
     Route: 048
     Dates: start: 201202

REACTIONS (2)
  - Hospitalisation [Unknown]
  - Death [Fatal]
